FAERS Safety Report 14035240 (Version 2)
Quarter: 2017Q4

REPORT INFORMATION
  Report Type: Spontaneous
  Country: IT (occurrence: IT)
  Receive Date: 20171003
  Receipt Date: 20171106
  Transmission Date: 20180321
  Serious: Yes (Hospitalization)
  Sender: FDA-Public Use
  Company Number: IT-PURDUE-GBR-2017-0049341

PATIENT

DRUGS (5)
  1. RIVOTRIL [Suspect]
     Active Substance: CLONAZEPAM
     Indication: INTENTIONAL SELF-INJURY
     Dosage: 1 UNIT, SINGLE
     Route: 048
     Dates: start: 20170612, end: 20170612
  2. ANTABUSE [Suspect]
     Active Substance: DISULFIRAM
     Indication: INTENTIONAL SELF-INJURY
     Dosage: 1 UNIT, SINGLE
     Route: 048
     Dates: start: 20170612, end: 20170612
  3. SEREUPIN [Suspect]
     Active Substance: PAROXETINE HYDROCHLORIDE
     Indication: INTENTIONAL SELF-INJURY
     Dosage: 1 UNIT, SINGLE
     Route: 048
     Dates: start: 20170612, end: 20170612
  4. MORPHINE SULFATE. [Suspect]
     Active Substance: MORPHINE SULFATE
     Indication: INTENTIONAL SELF-INJURY
     Dosage: 1 UNIT, SINGLE
     Route: 048
     Dates: start: 20170612, end: 20170612
  5. ALCOVER [Suspect]
     Active Substance: SODIUM OXYBATE
     Indication: INTENTIONAL SELF-INJURY
     Dosage: 2 UNIT, SINGLE
     Route: 048
     Dates: start: 20170612, end: 20170612

REACTIONS (5)
  - Coma scale abnormal [Unknown]
  - Toxicologic test abnormal [Unknown]
  - Intentional self-injury [Unknown]
  - Coma [Unknown]
  - Drug abuse [Unknown]

NARRATIVE: CASE EVENT DATE: 20170612
